FAERS Safety Report 21054297 (Version 2)
Quarter: 2022Q3

REPORT INFORMATION
  Report Type: Spontaneous
  Country: FR (occurrence: None)
  Receive Date: 20220707
  Receipt Date: 20220929
  Transmission Date: 20221027
  Serious: Yes (Hospitalization)
  Sender: FDA-Public Use
  Company Number: 2022A241585

PATIENT
  Age: 75 Year
  Sex: Male
  Weight: 69 kg

DRUGS (17)
  1. IMFINZI [Suspect]
     Active Substance: DURVALUMAB
     Indication: Small cell lung cancer metastatic
     Route: 042
     Dates: start: 20220412
  2. CARBOPLATIN [Suspect]
     Active Substance: CARBOPLATIN
     Indication: Small cell lung cancer metastatic
     Dosage: DOSE AS USED 410 MG
     Route: 065
     Dates: start: 20220615, end: 20220615
  3. ETOPOPHOS [Suspect]
     Active Substance: ETOPOSIDE PHOSPHATE
     Indication: Small cell lung cancer metastatic
     Dosage: DOSE AS USED 145 MG
     Route: 065
     Dates: start: 20220615, end: 20220615
  4. GAVISCON [Concomitant]
     Active Substance: ALUMINUM HYDROXIDE\MAGNESIUM CARBONATE
  5. METFORMIN HYDROCHLORIDE [Concomitant]
     Active Substance: METFORMIN HYDROCHLORIDE
  6. AMLODIPINE [Concomitant]
     Active Substance: AMLODIPINE BESYLATE
  7. LANSOPRAZOLE VIATRIS [Concomitant]
  8. PHLOROGLUCINOL [Concomitant]
     Active Substance: PHLOROGLUCINOL
  9. ALFUZOSIN [Concomitant]
     Active Substance: ALFUZOSIN
  10. FINASTERIDE [Concomitant]
     Active Substance: FINASTERIDE
  11. INSULIN GLARGINE [Concomitant]
     Active Substance: INSULIN GLARGINE
  12. DOLIPRANE [Concomitant]
     Active Substance: ACETAMINOPHEN
  13. HUMALOG [Concomitant]
     Active Substance: INSULIN LISPRO
  14. KARDEGIC [Concomitant]
     Active Substance: ASPIRIN DL-LYSINE
  15. VILDAGLIPTIN [Concomitant]
     Active Substance: VILDAGLIPTIN
  16. ZOPICLONE [Concomitant]
     Active Substance: ZOPICLONE
  17. ATORVASTATINE ARROW GENERIQUES 10 MG, COMPRIM? PELLICUL? [Concomitant]

REACTIONS (3)
  - Hyperleukocytosis [Recovered/Resolved]
  - Thrombocytosis [Recovered/Resolved]
  - Neutrophil count increased [Recovered/Resolved]

NARRATIVE: CASE EVENT DATE: 20220621
